FAERS Safety Report 8026358-2 (Version None)
Quarter: 2012Q1

REPORT INFORMATION
  Report Type: 
  Country: None (occurrence: None)
  Receive Date: 20120105
  Receipt Date: 20111027
  Transmission Date: 20120608
  Serious: No
  Sender: FDA-Public Use
  Company Number: US-ABBOTT-11P-163-0869766-00

PATIENT
  Sex: Female
  Weight: 103.51 kg

DRUGS (10)
  1. SYNTHROID [Suspect]
     Indication: HYPOTHYROIDISM
     Dates: start: 20090101
  2. SYNTHROID [Suspect]
     Dosage: WENT OFF MEDICATION FOR TWO MONTHS
  3. CELEBREX [Concomitant]
     Indication: RHEUMATOID ARTHRITIS
  4. NITROFURANTOIN [Concomitant]
     Indication: URINARY TRACT INFECTION
  5. LIBRIUM [Concomitant]
     Indication: PRODUCT USED FOR UNKNOWN INDICATION
  6. NITROFURANTOIN [Concomitant]
     Indication: ANTIBIOTIC PROPHYLAXIS
  7. METHOTREXATE [Concomitant]
     Indication: RHEUMATOID ARTHRITIS
  8. ENBREL [Concomitant]
     Indication: RHEUMATOID ARTHRITIS
  9. EFFEXOR [Concomitant]
     Indication: PRODUCT USED FOR UNKNOWN INDICATION
  10. FOLIC ACID [Concomitant]
     Indication: PRODUCT USED FOR UNKNOWN INDICATION

REACTIONS (7)
  - URINE ODOUR ABNORMAL [None]
  - WEIGHT INCREASED [None]
  - DRUG ADMINISTRATION ERROR [None]
  - DIABETES MELLITUS [None]
  - URINARY TRACT INFECTION [None]
  - SKIN ODOUR ABNORMAL [None]
  - BLOOD GLUCOSE FLUCTUATION [None]
